FAERS Safety Report 9723710 (Version 2)
Quarter: 2013Q4

REPORT INFORMATION
  Report Type: Report from Study
  Country: FR (occurrence: FR)
  Receive Date: 20131202
  Receipt Date: 20131216
  Transmission Date: 20140711
  Serious: Yes (Other)
  Sender: FDA-Public Use
  Company Number: FR-PFIZER INC-2013342705

PATIENT
  Age: 63 Year
  Sex: Female

DRUGS (3)
  1. ESTRACYT [Suspect]
     Indication: BREAST CANCER METASTATIC
     Dosage: 4 DOSAGES 140 MG EVERY 4 DAYS
     Route: 048
     Dates: start: 20130628, end: 20130707
  2. ESTRACYT [Suspect]
     Dosage: UNK
     Dates: start: 20130711, end: 20130809
  3. ESTRACYT [Suspect]
     Dosage: UNK
     Dates: start: 20130819, end: 20130902

REACTIONS (1)
  - Gastrooesophageal reflux disease [Recovered/Resolved]
